FAERS Safety Report 6157624-3 (Version None)
Quarter: 2009Q2

REPORT INFORMATION
  Report Type: 
  Country: None (occurrence: None)
  Receive Date: 20090414
  Receipt Date: 20090414
  Transmission Date: 20091009
  Serious: Yes (Other)
  Sender: FDA-Public Use
  Company Number: None

PATIENT
  Age: 51 Year
  Sex: Male
  Weight: 63.5036 kg

DRUGS (1)
  1. CRESTOR [Suspect]
     Indication: HYPERLIPIDAEMIA
     Dosage: 1 TABLET ONCE DAILY PO
     Route: 048
     Dates: start: 20081101, end: 20081201

REACTIONS (3)
  - DYSPEPSIA [None]
  - HEADACHE [None]
  - MYALGIA [None]
